FAERS Safety Report 10358812 (Version 1)
Quarter: 2014Q3

REPORT INFORMATION
  Report Type: Spontaneous
  Country: US (occurrence: None)
  Receive Date: 20140730
  Receipt Date: 20140730
  Transmission Date: 20150326
  Serious: Yes (Disabling)
  Sender: FDA-Public Use
  Company Number: None

PATIENT
  Age: 16 Year
  Sex: Male
  Weight: 74.39 kg

DRUGS (1)
  1. VYVANSE [Suspect]
     Active Substance: LISDEXAMFETAMINE DIMESYLATE
     Indication: ATTENTION DEFICIT/HYPERACTIVITY DISORDER
     Dosage: 1 ONCE DAILY
     Route: 048
     Dates: start: 20110330, end: 20140729

REACTIONS (5)
  - Irritability [None]
  - Tic [None]
  - Memory impairment [None]
  - Tachycardia [None]
  - Dry mouth [None]

NARRATIVE: CASE EVENT DATE: 20140415
